FAERS Safety Report 11148218 (Version 1)
Quarter: 2015Q2

REPORT INFORMATION
  Report Type: Spontaneous
  Country: FR (occurrence: FR)
  Receive Date: 20150529
  Receipt Date: 20150529
  Transmission Date: 20150821
  Serious: Yes (Hospitalization)
  Sender: FDA-Public Use
  Company Number: FR-WATSON-2015-10559

PATIENT
  Age: 52 Year
  Sex: Female

DRUGS (5)
  1. IMOVANE [Suspect]
     Active Substance: ZOPICLONE
     Indication: INSOMNIA
     Dosage: 1 DF, DAILY
     Route: 048
     Dates: start: 20150408, end: 20150428
  2. LEVETIRACETAM ACTAVIS [Suspect]
     Active Substance: LEVETIRACETAM
     Indication: EPILEPSY
     Dosage: 1 DF, DAILY
     Route: 048
     Dates: start: 20150408
  3. KEPPRA [Suspect]
     Active Substance: LEVETIRACETAM
     Indication: EPILEPSY
     Dosage: 1 DF, DAILY
     Route: 048
     Dates: start: 20150320, end: 20150408
  4. PHENYTOIN. [Suspect]
     Active Substance: PHENYTOIN
     Indication: EPILEPSY
     Dosage: 100 MG, DAILY
     Route: 048
     Dates: start: 20150320, end: 20150428
  5. TOPALGIC                           /00599202/ [Suspect]
     Active Substance: TRAMADOL
     Indication: PAIN
     Dosage: 50 MG, DAILY
     Route: 048
     Dates: start: 20150408, end: 20150428

REACTIONS (2)
  - Rash macular [Recovered/Resolved]
  - Eosinophilia [Recovered/Resolved]

NARRATIVE: CASE EVENT DATE: 20150421
